FAERS Safety Report 12550698 (Version 3)
Quarter: 2016Q3

REPORT INFORMATION
  Report Type: Spontaneous
  Country: DE (occurrence: DE)
  Receive Date: 20160712
  Receipt Date: 20160728
  Transmission Date: 20161109
  Serious: Yes (Other)
  Sender: FDA-Public Use
  Company Number: DE-BAUSCH-BL-2016-015670

PATIENT
  Age: 8 Decade
  Sex: Female

DRUGS (2)
  1. ZYKLOLAT EDO [Suspect]
     Active Substance: CYCLOPENTOLATE
     Indication: CATARACT OPERATION
  2. ZYKLOLAT EDO [Suspect]
     Active Substance: CYCLOPENTOLATE
     Indication: OPHTHALMOLOGICAL EXAMINATION
     Dosage: SEVERAL DROPS AT REGULAR BRIEF INTERVALS INSTILLED IN THE LEFT EYE.
     Route: 047
     Dates: start: 201512

REACTIONS (7)
  - Vision blurred [Not Recovered/Not Resolved]
  - Mydriasis [Recovered/Resolved]
  - Confusional state [Not Recovered/Not Resolved]
  - Dyschromatopsia [Not Recovered/Not Resolved]
  - Overdose [Unknown]
  - Accommodation disorder [Not Recovered/Not Resolved]
  - Pupillary disorder [Not Recovered/Not Resolved]

NARRATIVE: CASE EVENT DATE: 201512
